FAERS Safety Report 23936991 (Version 1)
Quarter: 2024Q2

REPORT INFORMATION
  Report Type: Spontaneous
  Country: US (occurrence: None)
  Receive Date: 20240603
  Receipt Date: 20240603
  Transmission Date: 20240716
  Serious: Yes (Disabling)
  Sender: FDA-Public Use
  Company Number: None

PATIENT
  Age: 64 Year
  Sex: Male
  Weight: 120.6 kg

DRUGS (11)
  1. ZUBSOLV [Suspect]
     Active Substance: BUPRENORPHINE HYDROCHLORIDE\NALOXONE HYDROCHLORIDE
     Indication: Pain
     Dosage: 60 TABLETS EVERY 12 HOURS SUBLINGUAL
     Route: 060
     Dates: start: 20231115, end: 20240530
  2. ZUBSOLV [Suspect]
     Active Substance: BUPRENORPHINE HYDROCHLORIDE\NALOXONE HYDROCHLORIDE
     Indication: Drug dependence
  3. SUBOXONE [Suspect]
     Active Substance: BUPRENORPHINE HYDROCHLORIDE\NALOXONE HYDROCHLORIDE
     Indication: Pain
     Dosage: OTHER QUANTITY : 84 SL FILMS?FREQUENCY : 3 TIMES A DAY?
     Route: 060
     Dates: start: 20220329, end: 20221207
  4. SUBOXONE [Suspect]
     Active Substance: BUPRENORPHINE HYDROCHLORIDE\NALOXONE HYDROCHLORIDE
     Indication: Drug dependence
  5. METHOCARBAMOL [Concomitant]
     Active Substance: METHOCARBAMOL
  6. OMEPRAZOLE [Concomitant]
     Active Substance: DONEPEZIL HYDROCHLORIDE\OMEPRAZOLE\OMEPRAZOLE MAGNESIUM
  7. DULOXETINE [Concomitant]
  8. HYDROXYZINE [Concomitant]
     Active Substance: HYDROXYZINE HYDROCHLORIDE
  9. ACETAMINOPHEN [Concomitant]
     Active Substance: ACETAMINOPHEN
  10. LIDOCAINE [Concomitant]
     Active Substance: LIDOCAINE
  11. CAPSAICIN [Concomitant]

REACTIONS (4)
  - Dental caries [None]
  - Tooth injury [None]
  - Loose tooth [None]
  - Tooth loss [None]

NARRATIVE: CASE EVENT DATE: 20240530
